FAERS Safety Report 5711925-9 (Version None)
Quarter: 2008Q2

REPORT INFORMATION
  Report Type: 
  Country: None (occurrence: None)
  Receive Date: 20080421
  Receipt Date: 20080411
  Transmission Date: 20081010
  Serious: Yes (Congenital Anomaly, Other)
  Sender: FDA-Public Use
  Company Number: US-ABBOTT-08P-163-0444351-00

PATIENT
  Sex: Female
  Weight: 2.815 kg

DRUGS (2)
  1. KALETRA [Suspect]
     Indication: DRUG EXPOSURE DURING PREGNANCY
     Route: 064
  2. LAMIVUDINE + ZIDOVUDINE [Suspect]
     Indication: DRUG EXPOSURE DURING PREGNANCY
     Route: 064

REACTIONS (51)
  - AGITATION [None]
  - ANAEMIA [None]
  - ANAEMIA NEONATAL [None]
  - ANAL EROSION [None]
  - BRAIN STEM AUDITORY EVOKED RESPONSE ABNORMAL [None]
  - BRONCHIOLITIS [None]
  - CANDIDIASIS [None]
  - CARDIAC MURMUR [None]
  - CLEFT LIP AND PALATE [None]
  - CONGENITAL ECTODERMAL DYSPLASIA [None]
  - CONJUNCTIVITIS [None]
  - CORNEAL ABRASION [None]
  - DACRYOSTENOSIS ACQUIRED [None]
  - DERMATITIS EXFOLIATIVE [None]
  - ELECTROENCEPHALOGRAM ABNORMAL [None]
  - ENLARGED CLITORIS [None]
  - ERYTHEMA [None]
  - EXOPHTHALMOS [None]
  - EXTREMITY CONTRACTURE [None]
  - EYE DISCHARGE [None]
  - EYELID FUNCTION DISORDER [None]
  - EYELID OEDEMA [None]
  - GASTROOESOPHAGEAL REFLUX DISEASE [None]
  - HYPOTHERMIA [None]
  - HYPOTRICHOSIS [None]
  - INVESTIGATION ABNORMAL [None]
  - JAUNDICE NEONATAL [None]
  - LABIA ENLARGED [None]
  - LIMB DEFORMITY [None]
  - LOCALISED INFECTION [None]
  - MADAROSIS [None]
  - MELANOCYTIC NAEVUS [None]
  - MOUTH ULCERATION [None]
  - OTITIS MEDIA BACTERIAL [None]
  - PAIN [None]
  - PNEUMONIA [None]
  - PULMONARY VALVE STENOSIS [None]
  - RASH MACULO-PAPULAR [None]
  - RASH PUSTULAR [None]
  - RESPIRATORY DISTRESS [None]
  - RESPIRATORY SYNCYTIAL VIRUS INFECTION [None]
  - RETICULOCYTE COUNT ABNORMAL [None]
  - SKIN EROSION [None]
  - SKIN EXFOLIATION [None]
  - SKIN HYPERPIGMENTATION [None]
  - SKIN LESION [None]
  - STAPHYLOCOCCAL INFECTION [None]
  - SUPERNUMERARY NIPPLE [None]
  - ULCERATIVE KERATITIS [None]
  - VOMITING [None]
  - WOUND DRAINAGE [None]
